FAERS Safety Report 5680075-2 (Version None)
Quarter: 2008Q1

REPORT INFORMATION
  Report Type: 
  Country: None (occurrence: None)
  Receive Date: 20080326
  Receipt Date: 20080219
  Transmission Date: 20080703
  Serious: No
  Sender: FDA-Public Use
  Company Number: US-BAYER-200814308NA

PATIENT
  Age: 48 Year
  Sex: Female

DRUGS (10)
  1. MAGNEVIST [Suspect]
     Indication: NUCLEAR MAGNETIC RESONANCE IMAGING BRAIN
     Route: 042
  2. ATIVAN [Concomitant]
  3. CELEXA [Concomitant]
  4. COLACE [Concomitant]
  5. MYOCIN [Concomitant]
  6. REGLAN [Concomitant]
  7. SINGULAIR [Concomitant]
  8. TARCEVA [Concomitant]
  9. TEMODAR [Concomitant]
  10. ZOFRAN ZYDIS [Concomitant]

REACTIONS (2)
  - RASH [None]
  - URTICARIA [None]
